FAERS Safety Report 22030282 (Version 1)
Quarter: 2023Q1

REPORT INFORMATION
  Report Type: Report from Study
  Country: US (occurrence: None)
  Receive Date: 20230223
  Receipt Date: 20230223
  Transmission Date: 20230417
  Serious: Yes (Hospitalization)
  Sender: FDA-Public Use
  Company Number: US-ROCHE-3287541

PATIENT
  Age: 69 Year
  Sex: Female
  Weight: 68.2 kg

DRUGS (2)
  1. BEVACIZUMAB [Suspect]
     Active Substance: BEVACIZUMAB
     Indication: Adenocarcinoma of colon
     Dosage: CYCLICAL, DATE OF THE MOST RECENT DOSE FOR BOTH MEDICATIONS WAS ON 07/JAN/2023
     Route: 042
     Dates: start: 20220215, end: 20230119
  2. FLUOROURACIL [Suspect]
     Active Substance: FLUOROURACIL
     Indication: Adenocarcinoma of colon
     Dosage: CYCLIC, DATE OF THE MOST RECENT DOSE FOR BOTH MEDICATIONS WAS ON 07/JAN/2023
     Route: 042
     Dates: start: 20220215, end: 20230119

REACTIONS (1)
  - Anaemia [Not Recovered/Not Resolved]

NARRATIVE: CASE EVENT DATE: 20230207
